FAERS Safety Report 10018709 (Version 2)
Quarter: 2014Q1

REPORT INFORMATION
  Report Type: Spontaneous
  Country: AU (occurrence: AU)
  Receive Date: 20140318
  Receipt Date: 20140318
  Transmission Date: 20141002
  Serious: Yes (Death, Hospitalization)
  Sender: FDA-Public Use
  Company Number: AU-SA-200319752GDDC

PATIENT
  Age: 63 Year
  Sex: Male
  Weight: 57 kg

DRUGS (3)
  1. NATRILIX [Suspect]
     Indication: ESSENTIAL HYPERTENSION
     Dosage: STOP DATE: MAY 2003
     Route: 048
     Dates: start: 20030509
  2. COVERSYL [Interacting]
     Indication: HYPERTENSION
     Route: 048
     Dates: start: 20030416, end: 200305
  3. FELODUR [Concomitant]
     Dosage: DOSE AS USED: UNK
     Dates: start: 20030414

REACTIONS (6)
  - Cardiac arrest [Fatal]
  - Hyponatraemia [Fatal]
  - Hypokalaemia [Fatal]
  - Confusional state [Fatal]
  - Grand mal convulsion [Fatal]
  - Drug interaction [Fatal]
